FAERS Safety Report 8585143-3 (Version None)
Quarter: 2012Q3

REPORT INFORMATION
  Report Type: 
  Country: None (occurrence: None)
  Receive Date: 20120810
  Receipt Date: 20120802
  Transmission Date: 20120928
  Serious: No
  Sender: FDA-Public Use
  Company Number: PHEH2012US015515

PATIENT
  Age: 54 Year
  Sex: Female

DRUGS (15)
  1. MULTI-VITAMINS [Concomitant]
  2. AMBIEN [Concomitant]
  3. VITAMIN D [Concomitant]
  4. VITAMIN B-12 [Concomitant]
  5. LORAZEPAM [Concomitant]
  6. PRISTIQ [Concomitant]
  7. TYLENOL [Concomitant]
  8. NEXIUM [Concomitant]
  9. REGLAN [Concomitant]
  10. POTASSIUM [Concomitant]
  11. LASIX [Concomitant]
  12. DEPAKOTE [Concomitant]
  13. CELEBREX [Concomitant]
  14. TASIGNA [Suspect]
     Indication: CHRONIC MYELOID LEUKAEMIA
     Dosage: 200 MG, DAILY
     Route: 048
     Dates: start: 20120606
  15. KLOR-CON [Concomitant]

REACTIONS (1)
  - LABELLED DRUG-FOOD INTERACTION MEDICATION ERROR [None]
